FAERS Safety Report 7825418 (Version 4)
Quarter: 2012Q4

REPORT INFORMATION
  Report Type: 
  Country: FR (occurrence: FR)
  Receive Date: 20110224
  Receipt Date: 20120913
  Transmission Date: 20130627
  Serious: Yes (Hospitalization, Other)
  Sender: FDA-Public Use
  Company Number: FR-ACTELION-A-CH2011-45031

PATIENT
  Age: 6 Year
  Sex: Male
  Weight: 21.5 kg

DRUGS (2)
  1. ZAVESCA [Suspect]
     Indication: NIEMANN-PICK DISEASE
     Dosage: 150 mg, tid
     Route: 048
     Dates: start: 20080710
  2. METHYLPHENIDATE [Concomitant]

REACTIONS (4)
  - Gastrostomy [Not Recovered/Not Resolved]
  - Refusal of treatment by patient [Not Recovered/Not Resolved]
  - Drug intolerance [Not Recovered/Not Resolved]
  - Cerebral atrophy [Unknown]
